FAERS Safety Report 20865617 (Version 1)
Quarter: 2022Q2

REPORT INFORMATION
  Report Type: Spontaneous
  Country: GB (occurrence: GB)
  Receive Date: 20220524
  Receipt Date: 20220524
  Transmission Date: 20220721
  Serious: Yes (Other)
  Sender: FDA-Public Use
  Company Number: None

PATIENT

DRUGS (1)
  1. BOSENTAN [Suspect]
     Active Substance: BOSENTAN
     Indication: Skin ulcer
     Dosage: 62.5 MILLIGRAM, BID, FOR 4 WEEKS
     Route: 065
     Dates: start: 20220331

REACTIONS (3)
  - Chills [Not Recovered/Not Resolved]
  - Body temperature decreased [Not Recovered/Not Resolved]
  - Hypothermia [Unknown]
